FAERS Safety Report 6492696-8 (Version None)
Quarter: 2009Q4

REPORT INFORMATION
  Report Type: 
  Country: None (occurrence: None)
  Receive Date: 20091211
  Receipt Date: 20091211
  Transmission Date: 20100525
  Serious: No
  Sender: FDA-Public Use
  Company Number: None

PATIENT
  Age: 11 Year
  Sex: Male
  Weight: 68.9 kg

DRUGS (1)
  1. OPTIRAY 350 [Suspect]
     Dosage: 100CC X1 IV CT SCAN - ABDOMEN AND PELVIS
     Route: 042

REACTIONS (3)
  - FEELING HOT [None]
  - NASAL CONGESTION [None]
  - PRURITUS GENERALISED [None]
